FAERS Safety Report 8383887-X (Version None)
Quarter: 2012Q1

REPORT INFORMATION
  Report Type: 
  Country: None (occurrence: None)
  Receive Date: 20120323
  Receipt Date: 20110405
  Transmission Date: 20120608
  Serious: Yes (Other)
  Sender: FDA-Public Use
  Company Number: 163-21880-11030790

PATIENT
  Age: 48 Year
  Sex: Male
  Weight: 97 kg

DRUGS (21)
  1. AMBIEN [Concomitant]
  2. NUX VOMICA (NUX VOMICA TINCTURE) [Concomitant]
  3. FISH OIL (FISH OIL) [Concomitant]
  4. SYNTHA 6 PROTEIN (PROTEIN SUPPLEMENTS) [Concomitant]
  5. VELCADE (BORTEZOMIDB) [Concomitant]
  6. DEXAMETHASONE [Concomitant]
  7. ACYCLOVIR [Concomitant]
  8. ASPIRIN [Concomitant]
  9. CO Q-10 (UBIDECARENONE) [Concomitant]
  10. REVLIMID [Suspect]
     Indication: MULTIPLE MYELOMA
     Dosage: 25 MG, AT NIGHT FOR 14 DAYS EVERY 14 DAYS EVERY 21 DAYS, PO
     Route: 048
     Dates: start: 20110124
  11. GLUTAMINE (LEVOGLUTAMIDE) [Concomitant]
  12. ZOMETA [Concomitant]
  13. WOBENZYME (WOBENZYM) [Concomitant]
  14. ALOXI [Concomitant]
  15. VITAMIN D [Concomitant]
  16. MAGNESIUM CITRATE (MAGNESIUM CITRATE) [Concomitant]
  17. PROTONIX [Concomitant]
  18. B6 + B-COMPLEX (CNCA) BECOSYM FORTE) CAPSULES) [Concomitant]
  19. CINNAMON (CINNAMOMUM VERUM) [Concomitant]
  20. BAKING SODIUM (SODIUM BICARBONATE) [Concomitant]
  21. PRUNE JUICE (ALL OTHER THERAPEUTIC PRODUCTS) [Concomitant]

REACTIONS (1)
  - NEUROPATHY PERIPHERAL [None]
